FAERS Safety Report 15929718 (Version 1)
Quarter: 2019Q1

REPORT INFORMATION
  Report Type: Spontaneous
  Country: PT (occurrence: PT)
  Receive Date: 20190206
  Receipt Date: 20190206
  Transmission Date: 20190417
  Serious: Yes (Other)
  Sender: FDA-Public Use
  Company Number: PT-ANIPHARMA-2019-PT-000006

PATIENT
  Sex: Male

DRUGS (2)
  1. ALFUZOSIN HYDROCHLORIDE): [Concomitant]
     Dosage: 10 MG UNK
     Route: 065
  2. CANDESARTAN CILEXETIL. [Suspect]
     Active Substance: CANDESARTAN CILEXETIL
     Indication: PRODUCT USED FOR UNKNOWN INDICATION
     Dosage: UNK
     Route: 048

REACTIONS (2)
  - Arrhythmia [Unknown]
  - Malaise [Unknown]
